FAERS Safety Report 16873169 (Version 1)
Quarter: 2019Q4

REPORT INFORMATION
  Report Type: Spontaneous
  Country: US (occurrence: US)
  Receive Date: 20191001
  Receipt Date: 20191001
  Transmission Date: 20200122
  Serious: No
  Sender: FDA-Public Use
  Company Number: None

PATIENT
  Age: 86 Year
  Sex: Female
  Weight: 63.23 kg

DRUGS (1)
  1. IBRANCE [Suspect]
     Active Substance: PALBOCICLIB
     Indication: BREAST CANCER
     Dosage: 125 MG ORAL 1C 21D ON, 7D OFF?
     Route: 048
     Dates: start: 20180831

REACTIONS (2)
  - Rash [None]
  - Pain in extremity [None]

NARRATIVE: CASE EVENT DATE: 20191001
